FAERS Safety Report 4813108-3 (Version None)
Quarter: 2005Q4

REPORT INFORMATION
  Report Type: 
  Country: None (occurrence: None)
  Receive Date: 20051028
  Receipt Date: 20051021
  Transmission Date: 20060501
  Serious: Yes (Life-Threatening, Other)
  Sender: FDA-Public Use
  Company Number: US-BRISTOL-MYERS SQUIBB COMPANY-13152988

PATIENT
  Age: 70 Year
  Sex: Male
  Weight: 114 kg

DRUGS (11)
  1. ERBITUX [Suspect]
     Indication: COLON CANCER METASTATIC
     Dosage: WAS TO RECEIVE 880 MG IV.
     Route: 042
     Dates: start: 20051020, end: 20051020
  2. ERBITUX [Suspect]
     Indication: HEPATIC NEOPLASM MALIGNANT
     Dosage: WAS TO RECEIVE 880 MG IV.
     Route: 042
     Dates: start: 20051020, end: 20051020
  3. ERBITUX [Suspect]
     Indication: LUNG NEOPLASM MALIGNANT
     Dosage: WAS TO RECEIVE 880 MG IV.
     Route: 042
     Dates: start: 20051020, end: 20051020
  4. AVASTIN [Concomitant]
     Route: 042
     Dates: end: 20050930
  5. BENADRYL [Concomitant]
     Indication: PREMEDICATION
     Route: 042
     Dates: start: 20051020, end: 20051020
  6. DIOVAN [Concomitant]
  7. HYDROCHLOROTHIAZIDE [Concomitant]
  8. IRINOTECAN HCL [Concomitant]
  9. NORVASC [Concomitant]
  10. POTASSIUM CHLORIDE [Concomitant]
  11. VITAMIN B6 [Concomitant]

REACTIONS (2)
  - ANAPHYLACTIC REACTION [None]
  - CARDIO-RESPIRATORY ARREST [None]
